FAERS Safety Report 7711591-7 (Version None)
Quarter: 2011Q3

REPORT INFORMATION
  Report Type: 
  Country: None (occurrence: None)
  Receive Date: 20110826
  Receipt Date: 20110505
  Transmission Date: 20111222
  Serious: No
  Sender: FDA-Public Use
  Company Number: US-BRISTOL-MYERS SQUIBB COMPANY-15721921

PATIENT
  Age: 66 Year
  Sex: Female
  Weight: 54 kg

DRUGS (8)
  1. SIMAVASTATIN [Concomitant]
  2. ONGLYZA [Suspect]
     Indication: BLOOD GLUCOSE
     Dates: start: 20110329, end: 20110502
  3. PLAVIX [Concomitant]
  4. ASCORBIC ACID [Concomitant]
  5. VITAMIN D [Concomitant]
  6. METAGLIP [Concomitant]
  7. ENALAPRIL MALEATE [Concomitant]
  8. CALCIUM CARBONATE [Concomitant]

REACTIONS (5)
  - BLOOD GLUCOSE INCREASED [None]
  - SINUSITIS [None]
  - FLUID RETENTION [None]
  - WEIGHT INCREASED [None]
  - INCREASED APPETITE [None]
